FAERS Safety Report 5972691-5 (Version None)
Quarter: 2008Q4

REPORT INFORMATION
  Report Type: 
  Country: None (occurrence: None)
  Receive Date: 20081201
  Receipt Date: 20080109
  Transmission Date: 20090506
  Serious: No
  Sender: FDA-Public Use
  Company Number: US-AMGEN-KDL259980

PATIENT
  Sex: Male

DRUGS (3)
  1. ENBREL [Suspect]
     Indication: PSORIASIS
     Route: 058
     Dates: start: 20080103
  2. ARAVA [Concomitant]
     Route: 048
  3. SULFASALAZINE [Concomitant]
     Route: 048
     Dates: start: 20050101

REACTIONS (1)
  - NASOPHARYNGITIS [None]
